FAERS Safety Report 6974887-2 (Version None)
Quarter: 2010Q3

REPORT INFORMATION
  Report Type: 
  Country: None (occurrence: None)
  Receive Date: 20100909
  Receipt Date: 20081229
  Transmission Date: 20110219
  Serious: No
  Sender: FDA-Public Use
  Company Number: US-WYE-H07433208

PATIENT
  Sex: Male

DRUGS (2)
  1. PRISTIQ [Suspect]
     Dosage: DOSE AND FREQUENCY UNSPECIFIED
  2. DIGOXIN [Interacting]
     Indication: ATRIAL FIBRILLATION
     Dosage: UNSPECIFIED
     Dates: start: 20081224

REACTIONS (2)
  - DRUG INTERACTION [None]
  - MALAISE [None]
